FAERS Safety Report 21241791 (Version 1)
Quarter: 2022Q3

REPORT INFORMATION
  Report Type: Spontaneous
  Country: FR (occurrence: FR)
  Receive Date: 20220823
  Receipt Date: 20220823
  Transmission Date: 20221026
  Serious: Yes (Hospitalization)
  Sender: FDA-Public Use
  Company Number: None

PATIENT
  Age: 33 Year
  Sex: Female

DRUGS (12)
  1. DULOXETINE [Interacting]
     Active Substance: DULOXETINE
     Indication: Depression
     Dosage: DULOXETINE BASE, UNIT DOSE: 60 MG , FREQUENCY TIME : 1 DAY, THERAPY START DATE : ASKU
     Dates: end: 20220709
  2. ADEMPAS [Interacting]
     Active Substance: RIOCIGUAT
     Indication: Pulmonary arterial hypertension
     Dosage: UNIT DOSE: 6 MG, FREQUENCY TIME : 1 DAY, THERAPY START DATE : ASKU
     Dates: end: 20220709
  3. TREPROSTINIL SODIUM [Interacting]
     Active Substance: TREPROSTINIL SODIUM
     Indication: Pulmonary arterial hypertension
     Dosage: UNIT DOSE: 1 MG , FREQUENCY TIME : 1 DAY, THERAPY START DATE : ASKU
     Dates: end: 20220709
  4. XARELTO [Interacting]
     Active Substance: RIVAROXABAN
     Indication: Cardiovascular event prophylaxis
     Dosage: UNIT DOSE, STRENGTH : 20 MG, FREQUENCY TIME : 1 DAY, DURATION : 4 YEARS
     Dates: start: 2018, end: 20220709
  5. AMBRISENTAN [Concomitant]
     Active Substance: AMBRISENTAN
     Indication: Product used for unknown indication
     Dosage: UNIT DOSE: 10 MG, FREQUENCY TIME : 1 DAY, THERAPY START DATE : ASKU
     Dates: end: 20220709
  6. TRESIBA [Concomitant]
     Active Substance: INSULIN DEGLUDEC
     Indication: Product used for unknown indication
     Dosage: UNIT DOSE : 24 IU, FREQUENCY TIME : 1 DAY, THERAPY START DATE AND END DATE : ASKU
  7. ALPRAZOLAM [Concomitant]
     Active Substance: ALPRAZOLAM
     Indication: Product used for unknown indication
     Dosage: UNIT DOSE: 0.25 MG , FREQUENCY TIME : 1 DAY, THERAPY START DATE AND END DATE : ASKU
  8. NOVORAPID [Concomitant]
     Active Substance: INSULIN ASPART
     Indication: Product used for unknown indication
     Dosage: THERAPY START DATE AND END DATE : ASKU
  9. FUROSEMIDE [Concomitant]
     Active Substance: FUROSEMIDE
     Indication: Product used for unknown indication
     Dosage: UNIT DOSE: 40 MG , FREQUENCY TIME : 1 DAY, THERAPY START DATE : ASKU
     Dates: end: 20220709
  10. RAMIPRIL [Concomitant]
     Active Substance: RAMIPRIL
     Indication: Product used for unknown indication
     Dosage: UNIT DOSE: 1.25 MG , FREQUENCY TIME : 1 DAY, THERAPY START DATE : ASKU
     Dates: end: 20220709
  11. POTASSIUM CHLORIDE [Concomitant]
     Active Substance: POTASSIUM CHLORIDE
     Indication: Product used for unknown indication
     Dosage: UNIT DOSE: 3600 MG, FREQUENCY TIME : 1 DAY, THERAPY START DATE AND END DATE : ASKU
  12. SPIRONOLACTONE [Concomitant]
     Active Substance: SPIRONOLACTONE
     Indication: Product used for unknown indication
     Dosage: UNIT DOSE: 25 MG, FREQUENCY TIME : 1 DAY, THERAPY START DATE : ASKU
     Dates: end: 20220709

REACTIONS (2)
  - Haemoptysis [Recovered/Resolved]
  - Drug interaction [Recovered/Resolved]

NARRATIVE: CASE EVENT DATE: 20220321
